FAERS Safety Report 9240329 (Version 2)
Quarter: 2013Q3

REPORT INFORMATION
  Report Type: Spontaneous
  Country: US (occurrence: None)
  Receive Date: 20130417
  Receipt Date: 20130716
  Transmission Date: 20140515
  Serious: Yes (Other)
  Sender: FDA-Public Use
  Company Number: JPI-P-031073

PATIENT
  Age: 33 Year
  Sex: Female

DRUGS (1)
  1. XYREM [Suspect]
     Indication: NARCOLEPSY
     Dosage: 6 GM (3 GM, 2 IN 1 D)
     Route: 048
     Dates: start: 20070702

REACTIONS (4)
  - Pregnancy [None]
  - Maternal drugs affecting foetus [None]
  - Abortion [None]
  - Maternal exposure during pregnancy [None]
